FAERS Safety Report 9187995 (Version 1)
Quarter: 2013Q1

REPORT INFORMATION
  Report Type: Spontaneous
  Country: US (occurrence: US)
  Receive Date: 20130325
  Receipt Date: 20130325
  Transmission Date: 20140127
  Serious: No
  Sender: FDA-Public Use
  Company Number: US-MYLANLABS-2012S1024112

PATIENT
  Sex: Male

DRUGS (5)
  1. FENTANYL TRANSDERMAL SYSTEM [Suspect]
     Indication: PAIN
     Dosage: CHANGES Q48
     Route: 062
     Dates: start: 2011
  2. TRAMADOL [Concomitant]
  3. VENTOLIN [Concomitant]
  4. OMEPRAZOLE [Concomitant]
  5. SUMATRIPTAN [Concomitant]

REACTIONS (3)
  - Drug effect decreased [Not Recovered/Not Resolved]
  - Pain [Not Recovered/Not Resolved]
  - Drug withdrawal syndrome [Not Recovered/Not Resolved]
